FAERS Safety Report 7123071-0 (Version None)
Quarter: 2010Q4

REPORT INFORMATION
  Report Type: 
  Country: None (occurrence: None)
  Receive Date: 20101125
  Receipt Date: 20101119
  Transmission Date: 20110411
  Serious: Yes (Other)
  Sender: FDA-Public Use
  Company Number: US-BIOGENIDEC-2009BI022598

PATIENT
  Age: 42 Year
  Sex: Female

DRUGS (3)
  1. AVONEX [Suspect]
     Indication: MULTIPLE SCLEROSIS
     Route: 030
     Dates: start: 20030101, end: 20090701
  2. AVONEX [Suspect]
     Route: 030
     Dates: start: 19961101, end: 20030101
  3. AVONEX [Suspect]
     Route: 030
     Dates: start: 20090101

REACTIONS (7)
  - BREAST CANCER IN SITU [None]
  - INFUSION SITE EXTRAVASATION [None]
  - INJECTION SITE CELLULITIS [None]
  - INJECTION SITE REACTION [None]
  - NAUSEA [None]
  - THROMBOSIS [None]
  - WEIGHT DECREASED [None]
